FAERS Safety Report 25661307 (Version 1)
Quarter: 2025Q3

REPORT INFORMATION
  Report Type: Spontaneous
  Country: CN (occurrence: CN)
  Receive Date: 20250808
  Receipt Date: 20250808
  Transmission Date: 20251020
  Serious: Yes (Hospitalization)
  Sender: BEIGENE
  Company Number: CN-BEIGENE-BGN-2025-012830

PATIENT
  Age: 55 Year
  Weight: 57 kg

DRUGS (8)
  1. TISLELIZUMAB [Suspect]
     Active Substance: TISLELIZUMAB
     Indication: Lung squamous cell carcinoma metastatic
  2. TISLELIZUMAB [Suspect]
     Active Substance: TISLELIZUMAB
     Route: 041
  3. TISLELIZUMAB [Suspect]
     Active Substance: TISLELIZUMAB
     Route: 041
  4. TISLELIZUMAB [Suspect]
     Active Substance: TISLELIZUMAB
  5. NEDAPLATIN [Concomitant]
     Active Substance: NEDAPLATIN
     Indication: Lung squamous cell carcinoma metastatic
     Route: 041
  6. NEDAPLATIN [Concomitant]
     Active Substance: NEDAPLATIN
  7. PACLITAXEL [Concomitant]
     Active Substance: PACLITAXEL
     Indication: Lung squamous cell carcinoma metastatic
     Route: 041
  8. PACLITAXEL [Concomitant]
     Active Substance: PACLITAXEL

REACTIONS (4)
  - Drug eruption [Recovering/Resolving]
  - Rash macular [Recovering/Resolving]
  - Pruritus [Recovering/Resolving]
  - Papule [Recovering/Resolving]
